FAERS Safety Report 10016612 (Version 2)
Quarter: 2014Q2

REPORT INFORMATION
  Report Type: Report from Study
  Country: JP (occurrence: JP)
  Receive Date: 20140317
  Receipt Date: 20140402
  Transmission Date: 20141212
  Serious: Yes (Hospitalization)
  Sender: FDA-Public Use
  Company Number: JP-B.I. PHARMACEUTICALS,INC./RIDGEFIELD-2014-BI-10700NB

PATIENT
  Age: 57 Year
  Sex: Male
  Weight: 98 kg

DRUGS (11)
  1. PRAZAXA [Suspect]
     Indication: CEREBROVASCULAR ACCIDENT PROPHYLAXIS
     Dosage: 220 MG
     Route: 048
     Dates: start: 20120304
  2. CRESTOR/ ROSUVASTATIN CALCIUM [Concomitant]
     Dosage: 5 MG
     Route: 048
  3. ROZEREM / RAMELTEON [Concomitant]
     Dosage: 8 MG
     Route: 048
  4. MOBIC / MELOXICAM [Concomitant]
     Route: 048
  5. GASLON N/ IRSOGLADINE MALEATE [Concomitant]
     Route: 048
  6. TAKEPRON / LANSOPRAZOLE [Concomitant]
     Dosage: 30 MG
     Route: 048
     Dates: start: 20120408
  7. MAINTATE/ BISOPROLOL FUMARATE [Concomitant]
     Indication: ATRIAL FIBRILLATION
     Dosage: 1.25 MG
     Route: 048
     Dates: start: 20120620
  8. MICARDIS / TELMISARTAN [Concomitant]
     Dosage: 20 MG
     Route: 048
     Dates: start: 20120801, end: 20130515
  9. MICARDIS / TELMISARTAN [Concomitant]
     Dosage: 20 MG
     Route: 048
     Dates: start: 20131030
  10. SUNRYTHM/ PILSICAINIDE HYDROCHLORIDE HYDRATE [Concomitant]
     Indication: ATRIAL FIBRILLATION
     Dosage: 75 MG
     Route: 048
     Dates: start: 20120822, end: 20121018
  11. SUNRYTHM/ PILSICAINIDE HYDROCHLORIDE HYDRATE [Concomitant]
     Dosage: 150 MG
     Route: 048
     Dates: start: 20121018

REACTIONS (2)
  - Cholangitis acute [Recovered/Resolved]
  - Cholelithiasis [Unknown]
